FAERS Safety Report 17434534 (Version 1)
Quarter: 2020Q1

REPORT INFORMATION
  Report Type: Spontaneous
  Country: DE (occurrence: DE)
  Receive Date: 20200219
  Receipt Date: 20200219
  Transmission Date: 20200409
  Serious: Yes (Other)
  Sender: FDA-Public Use
  Company Number: DE-PFIZER INC-2020068578

PATIENT
  Sex: Female

DRUGS (1)
  1. CYTOTEC [Suspect]
     Active Substance: MISOPROSTOL
     Indication: LABOUR INDUCTION
     Dosage: SINGLE DOSE, 41. PREGNANCY WEEK
     Route: 064
     Dates: start: 20061014, end: 20061014

REACTIONS (4)
  - Neonatal hypoxia [Unknown]
  - Heart sounds abnormal [Unknown]
  - Foetal heart rate deceleration abnormality [Unknown]
  - Foetal exposure during delivery [Unknown]

NARRATIVE: CASE EVENT DATE: 20061014
